FAERS Safety Report 7266433-3 (Version None)
Quarter: 2011Q1

REPORT INFORMATION
  Report Type: 
  Country: None (occurrence: None)
  Receive Date: 20110131
  Receipt Date: 20110126
  Transmission Date: 20110831
  Serious: Yes (Other)
  Sender: FDA-Public Use
  Company Number: JP-PFIZER INC-2011018971

PATIENT
  Sex: Female

DRUGS (1)
  1. LYRICA [Suspect]
     Indication: POST HERPETIC NEURALGIA
     Dosage: 75 MG DAILY
     Route: 048
     Dates: start: 20110105, end: 20110107

REACTIONS (2)
  - VIITH NERVE PARALYSIS [None]
  - HYPOAESTHESIA [None]
